FAERS Safety Report 10204596 (Version 1)
Quarter: 2014Q2

REPORT INFORMATION
  Report Type: Spontaneous
  Country: MY (occurrence: None)
  Receive Date: 20140527
  Receipt Date: 20140527
  Transmission Date: 20141212
  Serious: Yes (Hospitalization)
  Sender: FDA-Public Use
  Company Number: MY-ALKEM-000596

PATIENT
  Age: 35 Year
  Sex: Female

DRUGS (2)
  1. CEFUROXIME (CEFUROXIME) [Suspect]
     Indication: ANTIBIOTIC THERAPY
  2. METRONIDAZOLE (METRONIDAZOLE) [Suspect]
     Indication: ANTIBIOTIC THERAPY

REACTIONS (14)
  - Substance-induced psychotic disorder [None]
  - Delusion [None]
  - Decreased appetite [None]
  - Insomnia [None]
  - Hallucination, auditory [None]
  - Irritability [None]
  - Anger [None]
  - Aggression [None]
  - Crying [None]
  - Depressed mood [None]
  - Feeling guilty [None]
  - Abnormal behaviour [None]
  - Screaming [None]
  - Fear [None]
